FAERS Safety Report 7771407-X (Version None)
Quarter: 2011Q3

REPORT INFORMATION
  Report Type: 
  Country: None (occurrence: None)
  Receive Date: 20110922
  Receipt Date: 20110720
  Transmission Date: 20111222
  Serious: Yes (Other)
  Sender: FDA-Public Use
  Company Number: US-ASTRAZENECA-2008UW17705

PATIENT
  Age: 53 Year
  Sex: Female
  Weight: 136.1 kg

DRUGS (2)
  1. SEROQUEL [Suspect]
     Indication: SCHIZOPHRENIA
     Dosage: 100 MG AT 9 AM  AND   500 MG 9 PM
     Route: 048
     Dates: start: 20030828, end: 20050114
  2. RISPERDAL [Concomitant]
     Dates: start: 20030828, end: 20070302

REACTIONS (3)
  - TARDIVE DYSKINESIA [None]
  - DIABETES MELLITUS [None]
  - WEIGHT INCREASED [None]
